FAERS Safety Report 10065335 (Version 1)
Quarter: 2014Q1

REPORT INFORMATION
  Report Type: Spontaneous
  Country: US (occurrence: None)
  Receive Date: 20140328
  Receipt Date: 20140328
  Transmission Date: 20141002
  Serious: No
  Sender: FDA-Public Use
  Company Number: 1000052326

PATIENT
  Age: 70 Year
  Sex: Female

DRUGS (2)
  1. LINZESS (LINACLOTIDE) (145 MICROGRAM, CAPSULES) [Suspect]
     Route: 048
     Dates: start: 20131213, end: 20131213
  2. IMODIUM ( LOPERAMIDE HYDROCHLORIDE) ( LOPERAMIDE HYDROCHLORIDE) [Concomitant]

REACTIONS (2)
  - Accidental exposure to product [None]
  - Diarrhoea [None]
